FAERS Safety Report 25171974 (Version 1)
Quarter: 2025Q2

REPORT INFORMATION
  Report Type: Spontaneous
  Country: DE (occurrence: DE)
  Receive Date: 20250408
  Receipt Date: 20250408
  Transmission Date: 20250716
  Serious: Yes (Hospitalization, Other)
  Sender: ALKEM
  Company Number: None

PATIENT
  Age: 16 Year

DRUGS (15)
  1. ARIPIPRAZOLE [Interacting]
     Active Substance: ARIPIPRAZOLE
     Indication: Impulse-control disorder
     Route: 065
  2. ARIPIPRAZOLE [Interacting]
     Active Substance: ARIPIPRAZOLE
     Indication: Epilepsy
  3. ARIPIPRAZOLE [Interacting]
     Active Substance: ARIPIPRAZOLE
     Indication: Stereotypy
  4. ARIPIPRAZOLE [Interacting]
     Active Substance: ARIPIPRAZOLE
     Indication: Antipsychotic therapy
  5. ARIPIPRAZOLE [Interacting]
     Active Substance: ARIPIPRAZOLE
     Indication: Intellectual disability
  6. MELPERONE [Interacting]
     Active Substance: MELPERONE
     Indication: Impulse-control disorder
     Route: 065
  7. MELPERONE [Interacting]
     Active Substance: MELPERONE
     Indication: Intellectual disability
  8. MELPERONE [Interacting]
     Active Substance: MELPERONE
     Indication: Stereotypy
  9. MELPERONE [Interacting]
     Active Substance: MELPERONE
     Indication: Antipsychotic therapy
  10. MELPERONE [Interacting]
     Active Substance: MELPERONE
     Indication: Epilepsy
  11. PIPAMPERONE [Interacting]
     Active Substance: PIPAMPERONE
     Indication: Impulse-control disorder
     Route: 065
  12. PIPAMPERONE [Interacting]
     Active Substance: PIPAMPERONE
     Indication: Intellectual disability
  13. PIPAMPERONE [Interacting]
     Active Substance: PIPAMPERONE
     Indication: Stereotypy
  14. PIPAMPERONE [Interacting]
     Active Substance: PIPAMPERONE
     Indication: Antipsychotic therapy
  15. PIPAMPERONE [Interacting]
     Active Substance: PIPAMPERONE
     Indication: Epilepsy

REACTIONS (1)
  - Salivary hypersecretion [Unknown]
